FAERS Safety Report 5338377-5 (Version None)
Quarter: 2007Q2

REPORT INFORMATION
  Report Type: 
  Country: None (occurrence: None)
  Receive Date: 20070405
  Receipt Date: 20061114
  Transmission Date: 20071010
  Serious: No
  Sender: FDA-Public Use
  Company Number: US200611002714

PATIENT
  Age: 44 Year
  Sex: Female

DRUGS (1)
  1. CYMBALTA [Suspect]
     Indication: STRESS URINARY INCONTINENCE
     Dosage: 40 MG, 2/D
     Dates: start: 20061001

REACTIONS (1)
  - BLUNTED AFFECT [None]
